FAERS Safety Report 17445629 (Version 1)
Quarter: 2020Q1

REPORT INFORMATION
  Report Type: Spontaneous
  Country: FR (occurrence: FR)
  Receive Date: 20200221
  Receipt Date: 20200221
  Transmission Date: 20200409
  Serious: Yes (Other)
  Sender: FDA-Public Use
  Company Number: FR-PERRIGO-20FR002286

PATIENT
  Age: 41 Year
  Sex: Female

DRUGS (1)
  1. IMIQUIMOD. [Suspect]
     Active Substance: IMIQUIMOD
     Indication: ACTINIC KERATOSIS
     Dosage: THREE APPICATIONS/WEEK
     Route: 061

REACTIONS (2)
  - Inappropriate schedule of product administration [Recovered/Resolved]
  - Systemic lupus erythematosus [Recovered/Resolved]
